FAERS Safety Report 10623494 (Version 1)
Quarter: 2014Q4

REPORT INFORMATION
  Report Type: Spontaneous
  Country: MY (occurrence: MY)
  Receive Date: 20141203
  Receipt Date: 20141203
  Transmission Date: 20150529
  Serious: Yes (Hospitalization)
  Sender: FDA-Public Use
  Company Number: MY-IPSEN BIOPHARMACEUTICALS, INC.-2014-6569

PATIENT
  Age: 2 Year
  Sex: Male
  Weight: 17 kg

DRUGS (1)
  1. DYSPORT 500 UNITES SPEYWOOD [Suspect]
     Active Substance: ABOBOTULINUMTOXINA
     Indication: MUSCLE SPASTICITY
     Dosage: 500 UNITS
     Route: 030
     Dates: start: 20141106, end: 20141106

REACTIONS (1)
  - Seizure [Recovered/Resolved]

NARRATIVE: CASE EVENT DATE: 20141106
